FAERS Safety Report 5254613-8 (Version None)
Quarter: 2007Q1

REPORT INFORMATION
  Report Type: 
  Country: None (occurrence: None)
  Receive Date: 20070302
  Receipt Date: 20070221
  Transmission Date: 20070707
  Serious: Yes (Other)
  Sender: FDA-Public Use
  Company Number: ES-PFIZER INC-2007014205

PATIENT
  Sex: Female

DRUGS (1)
  1. ZARATOR [Suspect]
     Indication: HYPERCHOLESTEROLAEMIA
     Dosage: DAILY DOSE:40MG
     Route: 048

REACTIONS (4)
  - ADVERSE DRUG REACTION [None]
  - BILIARY TRACT DISORDER [None]
  - CHOLESTASIS [None]
  - DRUG INTOLERANCE [None]
